FAERS Safety Report 19683418 (Version 3)
Quarter: 2021Q3

REPORT INFORMATION
  Report Type: Report from Study
  Country: IT (occurrence: IT)
  Receive Date: 20210811
  Receipt Date: 20210903
  Transmission Date: 20211014
  Serious: Yes (Hospitalization, Other)
  Sender: FDA-Public Use
  Company Number: IT-JNJFOC-20210807813

PATIENT
  Age: 64 Year
  Sex: Female

DRUGS (3)
  1. SIMPONI [Suspect]
     Active Substance: GOLIMUMAB
     Indication: RHEUMATOID ARTHRITIS
     Dosage: 50 MG/M [SIC]
     Route: 058
  2. REMICADE [Suspect]
     Active Substance: INFLIXIMAB
     Indication: RHEUMATOID ARTHRITIS
     Route: 042
  3. METHOTREXATE. [Suspect]
     Active Substance: METHOTREXATE
     Indication: RHEUMATOID ARTHRITIS
     Route: 065

REACTIONS (3)
  - Rheumatoid arthritis [Recovered/Resolved]
  - Immune reconstitution inflammatory syndrome [Unknown]
  - Hepatitis B reactivation [Recovered/Resolved]
